FAERS Safety Report 5640619-3 (Version None)
Quarter: 2008Q1

REPORT INFORMATION
  Report Type: 
  Country: None (occurrence: None)
  Receive Date: 20080227
  Receipt Date: 20080204
  Transmission Date: 20080703
  Serious: Yes (Death)
  Sender: FDA-Public Use
  Company Number: GB-AVENTIS-200811542GDDC

PATIENT
  Age: 70 Year
  Sex: Female

DRUGS (39)
  1. GLIBENCLAMIDE [Suspect]
     Indication: DIABETES MELLITUS
     Route: 048
     Dates: start: 20050305, end: 20050331
  2. CLEXANE [Suspect]
     Indication: THROMBOSIS PROPHYLAXIS
     Route: 058
     Dates: start: 20050222, end: 20050331
  3. PHYTOMENADIONE [Suspect]
     Route: 048
     Dates: start: 20050309, end: 20050316
  4. PANTOZOL                           /01263202/ [Suspect]
     Route: 048
     Dates: start: 20050301, end: 20050317
  5. PANTOZOL                           /01263202/ [Suspect]
     Route: 042
     Dates: start: 20050318, end: 20050331
  6. SAROTEN [Suspect]
     Indication: DEPRESSION
     Route: 048
     Dates: start: 20040930, end: 20050318
  7. MYOCHOLINE                         /00115901/ [Suspect]
     Indication: URINARY INCONTINENCE
     Route: 048
     Dates: start: 20050210, end: 20050331
  8. BENURON [Suspect]
     Dates: start: 20050305, end: 20050319
  9. BENURON [Suspect]
     Route: 048
     Dates: start: 20050307, end: 20050315
  10. SULFAMETHOXAZOLE AND TRIMETHOPRIM [Suspect]
     Route: 048
     Dates: start: 20050307, end: 20050314
  11. RIOPAN                             /00141701/ [Suspect]
     Route: 048
     Dates: start: 20050307, end: 20050331
  12. IMODIUM [Suspect]
     Route: 048
     Dates: start: 20050308, end: 20050326
  13. NOVALGIN                           /00039501/ [Suspect]
     Indication: PAIN
     Dates: start: 20050309, end: 20050314
  14. PASPERTIN [Suspect]
     Indication: NAUSEA
     Route: 048
     Dates: start: 20050310, end: 20050318
  15. PASPERTIN [Suspect]
     Route: 048
     Dates: start: 20050322, end: 20050322
  16. CANDIO-HERMAL [Suspect]
     Dosage: DOSE QUANTITY: 1
     Dates: start: 20050317, end: 20050331
  17. SODIUM CHLORIDE [Suspect]
     Route: 042
     Dates: start: 20050318, end: 20050331
  18. ELECTROLYTE SOLUTIONS [Suspect]
     Route: 042
     Dates: start: 20050318, end: 20050331
  19. MULTIBIONTA                        /00111701/ [Suspect]
     Route: 042
     Dates: start: 20050322, end: 20050322
  20. URBASON [Suspect]
     Route: 042
     Dates: start: 20050322, end: 20050331
  21. MANINIL [Concomitant]
     Dates: start: 20050211, end: 20050303
  22. SORTIS                             /01326101/ [Concomitant]
     Dates: start: 20040930, end: 20050303
  23. VOLTAREN [Concomitant]
     Dates: start: 20050214, end: 20050309
  24. HAES [Concomitant]
     Dates: start: 20050304, end: 20050305
  25. MARCUMAR [Concomitant]
     Dates: start: 20050305, end: 20050308
  26. CALCIUM-SANDOZ                     /00177201/ [Concomitant]
     Dates: start: 20050308, end: 20050331
  27. XYLIT [Concomitant]
     Dates: start: 20050323, end: 20050323
  28. CALCIUM GLUCONATE [Concomitant]
     Dates: start: 20050323, end: 20050323
  29. UNKNOWN DRUG [Concomitant]
     Dates: start: 20050323, end: 20050323
  30. TPN [Concomitant]
     Dates: start: 20050323, end: 20050331
  31. ACTRAPID [Concomitant]
     Dates: start: 20050324, end: 20050329
  32. THIOCTACID [Concomitant]
     Dates: start: 20050325, end: 20050327
  33. CORANGIN [Concomitant]
     Dates: start: 20050327, end: 20050327
  34. FENISTIL [Concomitant]
     Dates: start: 20050327, end: 20050329
  35. FENISTIL [Concomitant]
     Dates: start: 20050328, end: 20050328
  36. XUSAL [Concomitant]
     Dates: start: 20050329, end: 20050331
  37. DECORTIN [Concomitant]
     Dates: start: 20050330, end: 20050331
  38. NOVALGIN                           /00039501/ [Concomitant]
     Dates: start: 20050331, end: 20050331
  39. AVELOX [Concomitant]
     Dates: start: 20050331, end: 20050331

REACTIONS (2)
  - STEVENS-JOHNSON SYNDROME [None]
  - TOXIC EPIDERMAL NECROLYSIS [None]
